FAERS Safety Report 18898094 (Version 1)
Quarter: 2021Q1

REPORT INFORMATION
  Report Type: Spontaneous
  Country: US (occurrence: US)
  Receive Date: 20210216
  Receipt Date: 20210216
  Transmission Date: 20210420
  Serious: No
  Sender: FDA-Public Use
  Company Number: US-CELLTRION INC.-2021US000739

PATIENT

DRUGS (3)
  1. TRUXIMA [Suspect]
     Active Substance: RITUXIMAB-ABBS
     Indication: HODGKIN^S DISEASE
     Dosage: 739 MG EVERY 21 DAYS
     Route: 042
     Dates: start: 20201211
  2. TRUXIMA [Suspect]
     Active Substance: RITUXIMAB-ABBS
     Dosage: 739 MG EVERY 21 DAYS
     Route: 042
     Dates: start: 20210128
  3. TRUXIMA [Suspect]
     Active Substance: RITUXIMAB-ABBS
     Dosage: 739 MG EVERY 21 DAYS
     Route: 042
     Dates: start: 20210105

REACTIONS (1)
  - Off label use [Unknown]
